FAERS Safety Report 6311865-0 (Version None)
Quarter: 2009Q3

REPORT INFORMATION
  Report Type: 
  Country: None (occurrence: None)
  Receive Date: 20090817
  Receipt Date: 20090806
  Transmission Date: 20100115
  Serious: Yes (Other)
  Sender: FDA-Public Use
  Company Number: JP-MERCK-0908USA01650

PATIENT
  Age: 68 Year
  Sex: Male

DRUGS (3)
  1. FOSAMAX [Suspect]
     Indication: OSTEOPOROSIS
     Route: 048
     Dates: start: 20070101, end: 20071210
  2. PREDNISOLONE [Concomitant]
     Indication: MYELODYSPLASTIC SYNDROME
     Route: 048
     Dates: start: 20070801
  3. PREDNISOLONE [Concomitant]
     Route: 048
     Dates: start: 20071201

REACTIONS (1)
  - OSTEONECROSIS [None]
